FAERS Safety Report 18647851 (Version 1)
Quarter: 2020Q4

REPORT INFORMATION
  Report Type: Spontaneous
  Country: US (occurrence: US)
  Receive Date: 20201221
  Receipt Date: 20201221
  Transmission Date: 20210114
  Serious: Yes (Hospitalization)
  Sender: FDA-Public Use
  Company Number: None

PATIENT
  Sex: Male

DRUGS (4)
  1. TACROLIMUS (STRIDES) 1 MG STRIDES PHARMA [Suspect]
     Active Substance: TACROLIMUS
     Indication: AGRANULOCYTOSIS
     Route: 048
     Dates: start: 202006
  2. NIVESTYM [Suspect]
     Active Substance: FILGRASTIM-AAFI
     Indication: AGRANULOCYTOSIS
     Dosage: ?          OTHER ROUTE:UNDER THE SKIN?
     Route: 058
     Dates: start: 202010
  3. NIVESTYM [Suspect]
     Active Substance: FILGRASTIM-AAFI
     Indication: LIVER TRANSPLANT
     Dosage: ?          OTHER ROUTE:UNDER THE SKIN?
     Route: 058
     Dates: start: 202010
  4. TACROLIMUS (STRIDES) 1 MG STRIDES PHARMA [Suspect]
     Active Substance: TACROLIMUS
     Indication: LIVER TRANSPLANT
     Route: 048
     Dates: start: 202006

REACTIONS (1)
  - Hospitalisation [None]
